FAERS Safety Report 8181593-8 (Version None)
Quarter: 2012Q1

REPORT INFORMATION
  Report Type: 
  Country: None (occurrence: None)
  Receive Date: 20120302
  Receipt Date: 20120222
  Transmission Date: 20120608
  Serious: Yes (Hospitalization, Other)
  Sender: FDA-Public Use
  Company Number: US-ELI_LILLY_AND_COMPANY-US201010003146

PATIENT
  Sex: Male

DRUGS (8)
  1. ZETIA [Concomitant]
  2. ENALAPRIL MALEATE [Concomitant]
  3. PRILOSEC [Concomitant]
  4. NIASPAN [Concomitant]
     Dosage: 2 DF, QD
  5. CRESTOR [Concomitant]
  6. ASPIRIN [Concomitant]
     Dosage: 1 DF, QD
  7. FORTEO [Suspect]
     Indication: OSTEOPOROSIS
     Dosage: 20 UG, DAILY (1/D)
     Dates: end: 20111201
  8. FORTEO [Suspect]
     Dosage: 20 UG, DAILY (1/D)
     Dates: start: 20120222

REACTIONS (11)
  - DIARRHOEA [None]
  - MYALGIA [None]
  - PAIN [None]
  - FALL [None]
  - ANGINA PECTORIS [None]
  - VERTIGO [None]
  - GAIT DISTURBANCE [None]
  - ARTHRALGIA [None]
  - DRUG DOSE OMISSION [None]
  - LIMB DISCOMFORT [None]
  - SPINAL FRACTURE [None]
